FAERS Safety Report 5317320-9 (Version None)
Quarter: 2007Q2

REPORT INFORMATION
  Report Type: 
  Country: None (occurrence: None)
  Receive Date: 20070504
  Receipt Date: 20070424
  Transmission Date: 20071010
  Serious: Yes (Other)
  Sender: FDA-Public Use
  Company Number: PFIZER INC-2007033969

PATIENT
  Sex: Female
  Weight: 52.272 kg

DRUGS (5)
  1. CHANTIX [Suspect]
     Indication: SMOKING CESSATION THERAPY
  2. EVISTA [Concomitant]
  3. LEVOTHYROXINE SODIUM [Concomitant]
  4. SPIRIVA [Concomitant]
  5. ACETYLSALICYLIC ACID SRT [Concomitant]

REACTIONS (7)
  - CHEST PAIN [None]
  - DYSPNOEA [None]
  - NAUSEA [None]
  - PULMONARY ARTERIAL PRESSURE INCREASED [None]
  - PULMONARY FUNCTION TEST ABNORMAL [None]
  - ROAD TRAFFIC ACCIDENT [None]
  - VOMITING [None]
